FAERS Safety Report 7466319-5 (Version None)
Quarter: 2011Q2

REPORT INFORMATION
  Report Type: 
  Country: None (occurrence: None)
  Receive Date: 20110509
  Receipt Date: 20110427
  Transmission Date: 20111010
  Serious: Yes (Other)
  Sender: FDA-Public Use
  Company Number: IT-CELGENEUS-083-21660-11043541

PATIENT
  Sex: Male

DRUGS (1)
  1. ABRAXANE [Suspect]
     Route: 051
     Dates: start: 20101217, end: 20110421

REACTIONS (2)
  - STRIDOR [None]
  - MUSCULOSKELETAL PAIN [None]
